FAERS Safety Report 4867497-4 (Version None)
Quarter: 2005Q4

REPORT INFORMATION
  Report Type: 
  Country: None (occurrence: None)
  Receive Date: 20051222
  Receipt Date: 20051215
  Transmission Date: 20060501
  Serious: Yes (Hospitalization)
  Sender: FDA-Public Use
  Company Number: MC200501141

PATIENT
  Age: 84 Year
  Sex: Female

DRUGS (3)
  1. ANGIOMAX [Suspect]
     Indication: ARTERIOGRAM CORONARY
     Dosage: BOLUS, IV BOLUS; SEE IMAGE
     Route: 040
     Dates: start: 20051213, end: 20051213
  2. HEPARIN [Suspect]
     Dates: start: 20051213
  3. CONTRAST MEDIA [Concomitant]

REACTIONS (3)
  - ANAPHYLACTIC REACTION [None]
  - CONVULSION [None]
  - RESPIRATORY ARREST [None]
